FAERS Safety Report 17907612 (Version 1)
Quarter: 2020Q2

REPORT INFORMATION
  Report Type: Spontaneous
  Country: GB (occurrence: GB)
  Receive Date: 20200617
  Receipt Date: 20200617
  Transmission Date: 20200714
  Serious: Yes (Life-Threatening, Hospitalization, Disabling)
  Sender: FDA-Public Use
  Company Number: GB-PFIZER INC-2020232743

PATIENT
  Age: 59 Year
  Sex: Female
  Weight: 161 kg

DRUGS (5)
  1. FOLIC ACID. [Concomitant]
     Active Substance: FOLIC ACID
  2. PROVERA [Suspect]
     Active Substance: MEDROXYPROGESTERONE ACETATE
     Indication: VAGINAL HAEMORRHAGE
     Dosage: 30 MG, 1X/DAY
     Route: 048
     Dates: start: 20200420, end: 20200502
  3. HYDROXOCOBALAMIN [Concomitant]
     Active Substance: HYDROXOCOBALAMIN
  4. FERROUS FUMARATE [Concomitant]
     Active Substance: FERROUS FUMARATE
  5. VENTOLINE [SALBUTAMOL] [Concomitant]
     Active Substance: ALBUTEROL SULFATE

REACTIONS (5)
  - Product use issue [Unknown]
  - Pulmonary embolism [Recovered/Resolved with Sequelae]
  - Dyspnoea [Unknown]
  - Myocardial strain [Unknown]
  - Off label use [Unknown]

NARRATIVE: CASE EVENT DATE: 20200420
